FAERS Safety Report 7628578-5 (Version None)
Quarter: 2011Q3

REPORT INFORMATION
  Report Type: 
  Country: None (occurrence: None)
  Receive Date: 20110721
  Receipt Date: 20110721
  Transmission Date: 20111222
  Serious: No
  Sender: FDA-Public Use
  Company Number: None

PATIENT
  Age: 84 Year
  Sex: Female
  Weight: 70.2622 kg

DRUGS (2)
  1. DIGOXIN [Suspect]
     Indication: ATRIAL FIBRILLATION
     Dosage: 0.125MG 1 DAILY ORAL
     Route: 048
     Dates: start: 20110706
  2. PRADAXA [Suspect]
     Indication: ATRIAL FIBRILLATION
     Dosage: 75MG 1 TWICE DAILY ORAL
     Dates: start: 20110706

REACTIONS (1)
  - RASH [None]
